FAERS Safety Report 9310824 (Version 1)
Quarter: 2013Q2

REPORT INFORMATION
  Report Type: Spontaneous
  Country: US (occurrence: None)
  Receive Date: 20130523
  Receipt Date: 20130523
  Transmission Date: 20140414
  Serious: Yes (Death)
  Sender: FDA-Public Use
  Company Number: None

PATIENT
  Age: 54 Year
  Sex: Male

DRUGS (1)
  1. XELODA [Suspect]
     Dosage: XELODA 500MG BID X14DYS P.O.
     Route: 048
     Dates: start: 20130424, end: 201305

REACTIONS (1)
  - Death [None]
